FAERS Safety Report 8776377 (Version 1)
Quarter: 2012Q4

REPORT INFORMATION
  Report Type: 
  Country: FR (occurrence: FR)
  Receive Date: 20120907
  Receipt Date: 20120907
  Transmission Date: 20130627
  Serious: Yes (Hospitalization)
  Sender: FDA-Public Use
  Company Number: FR-PFIZER INC-2012214613

PATIENT
  Age: 77 Year
  Sex: Female

DRUGS (2)
  1. ZITHROMAX [Suspect]
     Indication: PNEUMONIA ESCHERICHIA
     Dosage: 250 mg, 1x/day
     Route: 048
     Dates: start: 20120714, end: 20120727
  2. CEFTRIAXONE [Suspect]
     Indication: PNEUMONIA ESCHERICHIA
     Dosage: 2 g, 1x/day
     Route: 042
     Dates: start: 20120714, end: 20120727

REACTIONS (1)
  - Vascular purpura [Recovered/Resolved]
